FAERS Safety Report 6796022-6 (Version None)
Quarter: 2010Q2

REPORT INFORMATION
  Report Type: 
  Country: None (occurrence: None)
  Receive Date: 20100625
  Receipt Date: 20100618
  Transmission Date: 20101027
  Serious: Yes (Other)
  Sender: FDA-Public Use
  Company Number: TR-ELI_LILLY_AND_COMPANY-TR201006005165

PATIENT
  Age: 38 Year
  Sex: Female

DRUGS (4)
  1. HUMULIN R [Suspect]
     Indication: GESTATIONAL DIABETES
     Dosage: 4 U, EACH MORNING
     Route: 058
     Dates: end: 20100322
  2. HUMULIN R [Suspect]
     Dosage: 4 U, EACH AFTERNOON
     Route: 058
     Dates: end: 20100322
  3. HUMULIN R [Suspect]
     Dosage: 4 U, EACH EVENING
     Route: 058
     Dates: end: 20100322
  4. HUMULIN N [Suspect]
     Indication: GESTATIONAL DIABETES
     Dosage: 6 U, EACH NIGHT
     Route: 058
     Dates: end: 20100322

REACTIONS (2)
  - ABORTION SPONTANEOUS [None]
  - DRUG EXPOSURE DURING PREGNANCY [None]
